FAERS Safety Report 5787736-5 (Version None)
Quarter: 2008Q2

REPORT INFORMATION
  Report Type: 
  Country: None (occurrence: None)
  Receive Date: 20080625
  Receipt Date: 20080619
  Transmission Date: 20081010
  Serious: Yes (Other)
  Sender: FDA-Public Use
  Company Number: JP-ASTRAZENECA-2008AP04804

PATIENT
  Age: 71 Year
  Sex: Female

DRUGS (2)
  1. ANAPEINE INJECTION [Suspect]
     Indication: EPIDURAL ANAESTHESIA
     Route: 008
  2. FENTANYL CITRATE [Concomitant]
     Indication: EPIDURAL ANAESTHESIA
     Dosage: DOSE UNKNOWN
     Route: 008

REACTIONS (4)
  - BLOOD PRESSURE DECREASED [None]
  - MONOPLEGIA [None]
  - PYREXIA [None]
  - SPINAL CORD INFARCTION [None]
